FAERS Safety Report 6599307-1 (Version None)
Quarter: 2010Q1

REPORT INFORMATION
  Report Type: 
  Country: None (occurrence: None)
  Receive Date: 20100217
  Receipt Date: 20100128
  Transmission Date: 20100710
  Serious: Yes (Hospitalization)
  Sender: FDA-Public Use
  Company Number: DSU-2010-00339

PATIENT
  Sex: Male

DRUGS (4)
  1. OLMESARTAN MEDOXOMIL [Suspect]
     Indication: HYPERTENSION
     Dosage: 10 MG (10 MG, QD), PER ORAL
     Route: 048
  2. RYTMONORM (PROPAFENONE HYDROCHLORIDE) (PROPAFENONE HYDROCHLORIDE) [Concomitant]
  3. ISCOVER (CLOPIDOGREL SULFATE) (CLOPIDOGREL SULFATE) [Concomitant]
  4. SALOSPIR (ACETYLSALICYLIC ACID) (100 MILLIGRAM) (ACETYLSALICYLIC ACID) [Concomitant]

REACTIONS (3)
  - ATRIAL FIBRILLATION [None]
  - HAEMATOCRIT DECREASED [None]
  - RENAL FAILURE ACUTE [None]
